FAERS Safety Report 4796261-X (Version None)
Quarter: 2005Q4

REPORT INFORMATION
  Report Type: 
  Country: None (occurrence: None)
  Receive Date: 20051007
  Receipt Date: 20051001
  Transmission Date: 20060501
  Serious: Yes (Other)
  Sender: FDA-Public Use
  Company Number: 2005131271

PATIENT
  Sex: Female
  Weight: 54.4316 kg

DRUGS (2)
  1. RELPAX [Suspect]
     Indication: AURA
     Dosage: ORAL
     Route: 048
     Dates: start: 20050915
  2. TOPAMAX [Suspect]
     Indication: ILL-DEFINED DISORDER
     Dosage: 25 MG (25 MG, 1 IN 1 D), ORAL
     Route: 048
     Dates: start: 20050101

REACTIONS (4)
  - ANGLE CLOSURE GLAUCOMA [None]
  - BLINDNESS TRANSIENT [None]
  - MYDRIASIS [None]
  - OCULAR HYPERAEMIA [None]
